FAERS Safety Report 8496372-1 (Version None)
Quarter: 2012Q2

REPORT INFORMATION
  Report Type: 
  Country: None (occurrence: None)
  Receive Date: 20120405
  Receipt Date: 20091104
  Transmission Date: 20120825
  Serious: Yes (Hospitalization)
  Sender: FDA-Public Use
  Company Number: PHEH2009US14307

PATIENT
  Age: 53 Year
  Sex: Female
  Weight: 54 kg

DRUGS (1)
  1. RECLAST [Suspect]
     Indication: OSTEOPOROSIS
     Dosage: 5 MG/100 MT. INTRAVENOUS
     Route: 042
     Dates: start: 20091021

REACTIONS (7)
  - INFLUENZA [None]
  - MALAISE [None]
  - NAUSEA [None]
  - VOMITING [None]
  - CHILLS [None]
  - CHEST PAIN [None]
  - PAIN [None]
